FAERS Safety Report 21839711 (Version 2)
Quarter: 2023Q1

REPORT INFORMATION
  Report Type: Report from Study
  Country: US (occurrence: US)
  Receive Date: 20230109
  Receipt Date: 20230113
  Transmission Date: 20230417
  Serious: Yes (Other)
  Sender: FDA-Public Use
  Company Number: US-ABBVIE-22K-163-4426322-00

PATIENT
  Age: 58 Year
  Sex: Male
  Weight: 72.5 kg

DRUGS (3)
  1. HUMIRA [Suspect]
     Active Substance: ADALIMUMAB
     Indication: Rheumatoid arthritis
     Dosage: START DATE TEXT: MORE THAN FIVE YEARS?FORM STRENGTH: 40 MILLIGRAM
     Route: 058
     Dates: end: 202212
  2. HUMIRA [Suspect]
     Active Substance: ADALIMUMAB
     Indication: Ankylosing spondylitis
     Dosage: FORM STRENGTH: 40 MILLIGRAM
     Route: 058
     Dates: start: 202212
  3. INSULIN NOS [Concomitant]
     Active Substance: INSULIN NOS
     Indication: Product used for unknown indication

REACTIONS (7)
  - Arthralgia [Recovering/Resolving]
  - Hip arthroplasty [Recovering/Resolving]
  - Gait disturbance [Not Recovered/Not Resolved]
  - Arthralgia [Recovered/Resolved]
  - Arthralgia [Unknown]
  - Joint effusion [Recovering/Resolving]
  - Joint swelling [Not Recovered/Not Resolved]

NARRATIVE: CASE EVENT DATE: 20180924
